FAERS Safety Report 8124094-5 (Version None)
Quarter: 2012Q1

REPORT INFORMATION
  Report Type: 
  Country: None (occurrence: None)
  Receive Date: 20120209
  Receipt Date: 20120203
  Transmission Date: 20120608
  Serious: Yes (Other)
  Sender: FDA-Public Use
  Company Number: US-PFIZER INC-2012032133

PATIENT
  Sex: Female

DRUGS (4)
  1. CHANTIX [Suspect]
     Indication: SMOKING CESSATION THERAPY
     Dosage: STARTER KIT AND THEN FULL STRENGTH
     Dates: start: 20060101
  2. PLAVIX [Concomitant]
     Indication: ANTICOAGULANT THERAPY
     Dosage: UNK
     Dates: start: 20060101
  3. CHANTIX [Suspect]
     Dosage: STARTER KIT AND THEN FULL STRENGTH
     Dates: start: 20090601, end: 20100101
  4. AMLODIPINE BESYLATE AND VALSARTAN [Concomitant]
     Indication: HYPERTENSION
     Dosage: UNK
     Dates: start: 20060101

REACTIONS (5)
  - THINKING ABNORMAL [None]
  - ANXIETY [None]
  - NIGHTMARE [None]
  - SUICIDE ATTEMPT [None]
  - DEPRESSION [None]
